FAERS Safety Report 4405410-4 (Version None)
Quarter: 2004Q3

REPORT INFORMATION
  Report Type: 
  Country: None (occurrence: None)
  Receive Date: 20040723
  Receipt Date: 20030812
  Transmission Date: 20050211
  Serious: No
  Sender: FDA-Public Use
  Company Number: US-GLAXOSMITHKLINE-A0420828A

PATIENT
  Age: 79 Year
  Sex: Male

DRUGS (3)
  1. AVANDIA [Suspect]
     Dosage: 4MG TWICE PER DAY
     Route: 048
     Dates: end: 20030808
  2. GLUCOTROL XL [Concomitant]
  3. GLUCOPHAGE [Concomitant]

REACTIONS (1)
  - BLOOD GLUCOSE DECREASED [None]
